FAERS Safety Report 10889883 (Version 1)
Quarter: 2015Q1

REPORT INFORMATION
  Report Type: Spontaneous
  Country: IT (occurrence: IT)
  Receive Date: 20150305
  Receipt Date: 20150305
  Transmission Date: 20150721
  Serious: Yes (Hospitalization)
  Sender: FDA-Public Use
  Company Number: IT-TEVA-544312ACC

PATIENT
  Age: 52 Year
  Sex: Male

DRUGS (3)
  1. FLUOROURACILE TEVA - 5 G/100 ML SOLUZIONE PER INFUSIONE - TEVA ITALIA [Suspect]
     Active Substance: FLUOROURACIL
     Indication: LARYNGEAL SQUAMOUS CELL CARCINOMA
     Dosage: 4 G CYCLICAL
     Route: 042
     Dates: start: 20141103, end: 20141125
  2. TAXCEUS - 20MG/ML CONCENTRATO PER SOLUZIONE PER INFUSIONE [Suspect]
     Active Substance: DOCETAXEL
     Indication: LARYNGEAL SQUAMOUS CELL CARCINOMA
     Dosage: 87 MG CYCLICAL; CONCENTRATE FOR SOLUTION FOR INFUSION
     Route: 042
     Dates: start: 20141103, end: 20141125
  3. CISPLATINO ACCORD HEALTHCARE ITALIA [Suspect]
     Active Substance: CISPLATIN
     Indication: LARYNGEAL SQUAMOUS CELL CARCINOMA
     Dosage: 87 MG CYCLICAL; CONCENTRATE FOR SOLUTION FOR INFUSION
     Route: 042
     Dates: start: 20141103, end: 20141125

REACTIONS (4)
  - Moraxella infection [Recovered/Resolved]
  - Neutropenia [Recovered/Resolved]
  - Leukopenia [Recovered/Resolved]
  - Sepsis [Recovered/Resolved]

NARRATIVE: CASE EVENT DATE: 20141205
